FAERS Safety Report 11833651 (Version 1)
Quarter: 2015Q4

REPORT INFORMATION
  Report Type: Spontaneous
  Country: US (occurrence: US)
  Receive Date: 20151214
  Receipt Date: 20151214
  Transmission Date: 20160305
  Serious: No
  Sender: FDA-Public Use
  Company Number: US-TEVA-617621ACC

PATIENT

DRUGS (3)
  1. RITUXIMAB [Concomitant]
     Active Substance: RITUXIMAB
     Indication: MANTLE CELL LYMPHOMA
     Dosage: ON DAY 1 OF EACH 28 DAY CYCLE
  2. VELIPARIB [Concomitant]
     Active Substance: VELIPARIB
     Indication: MANTLE CELL LYMPHOMA
     Dosage: 600 MILLIGRAM DAILY; ON DAYS 1-7
     Route: 048
  3. BENDAMUSTINE HYDROCHLORIDE [Suspect]
     Active Substance: BENDAMUSTINE HYDROCHLORIDE
     Indication: MANTLE CELL LYMPHOMA
     Dosage: DAYS 1 AND 2
     Route: 042

REACTIONS (1)
  - Off label use [Unknown]
